FAERS Safety Report 13725830 (Version 1)
Quarter: 2017Q3

REPORT INFORMATION
  Report Type: Spontaneous
  Country: FR (occurrence: FR)
  Receive Date: 20170707
  Receipt Date: 20170707
  Transmission Date: 20171127
  Serious: Yes (Other)
  Sender: FDA-Public Use
  Company Number: FR-BAYER-2017-128695

PATIENT
  Age: 30 Year
  Sex: Female

DRUGS (1)
  1. MIRENA [Suspect]
     Active Substance: LEVONORGESTREL
     Indication: CONTRACEPTION
     Dosage: 20 MCG/24HR, CONT
     Route: 015
     Dates: start: 20150216, end: 20170116

REACTIONS (9)
  - Vaginal infection [Unknown]
  - Weight increased [Unknown]
  - Hypertrichosis [Unknown]
  - Depression [Unknown]
  - Alopecia [Unknown]
  - Headache [Unknown]
  - Acne [Unknown]
  - Loss of libido [Unknown]
  - Abdominal pain [Unknown]

NARRATIVE: CASE EVENT DATE: 20150416
